FAERS Safety Report 21397116 (Version 1)
Quarter: 2022Q3

REPORT INFORMATION
  Report Type: Spontaneous
  Country: US (occurrence: None)
  Receive Date: 20220929
  Receipt Date: 20220929
  Transmission Date: 20221027
  Serious: Yes (Hospitalization)
  Sender: FDA-Public Use
  Company Number: None

PATIENT
  Age: 73 Year
  Sex: Male

DRUGS (10)
  1. PIRFENIDONE [Suspect]
     Active Substance: PIRFENIDONE
     Indication: Idiopathic pulmonary fibrosis
     Dosage: RX2:  TAKE 3 TAB;ETS BY MOUTH THREE TIMES DAILY
     Route: 048
     Dates: start: 20220823
  2. DOXYCYCL HCL CAP [Concomitant]
  3. LUMIGAN SOL [Concomitant]
  4. METOPROLOL SUC TAB [Concomitant]
  5. OMEPRAZOLE SODIUM [Concomitant]
     Active Substance: OMEPRAZOLE SODIUM
  6. ONDANSETRON TAB [Concomitant]
  7. PROCRIT [Concomitant]
     Active Substance: ERYTHROPOIETIN
  8. REBLOZYL INJ [Concomitant]
  9. TOPROL XL TAB [Concomitant]
  10. XARELTO TAB [Concomitant]

REACTIONS (1)
  - Pyrexia [None]

NARRATIVE: CASE EVENT DATE: 20220928
